FAERS Safety Report 9894281 (Version 3)
Quarter: 2014Q2

REPORT INFORMATION
  Report Type: Spontaneous
  Country: FR (occurrence: FR)
  Receive Date: 20140213
  Receipt Date: 20140623
  Transmission Date: 20141212
  Serious: Yes (Hospitalization)
  Sender: FDA-Public Use
  Company Number: FR-VIIV HEALTHCARE LIMITED-B0965527A

PATIENT
  Age: 52 Year
  Sex: Female

DRUGS (7)
  1. KIVEXA [Suspect]
     Indication: HIV INFECTION
     Dosage: 1TAB PER DAY
     Route: 048
     Dates: start: 20131129, end: 20140119
  2. SPASFON [Suspect]
     Indication: RENAL COLIC
     Route: 048
     Dates: start: 20140116, end: 20140118
  3. EDURANT [Concomitant]
     Indication: HIV INFECTION
     Dosage: 25MG PER DAY
     Route: 048
     Dates: start: 20131129
  4. BIPROFENID [Concomitant]
     Indication: RENAL COLIC
     Route: 048
     Dates: start: 20140116, end: 20140118
  5. PROFENID [Concomitant]
     Indication: RENAL COLIC
     Route: 042
     Dates: start: 20140115, end: 20140115
  6. MORPHIN [Concomitant]
     Indication: RENAL COLIC
     Dosage: 8MG PER DAY
     Route: 042
     Dates: start: 20140115, end: 20140115
  7. AMOXICILLIN [Concomitant]
     Indication: PRODUCT USED FOR UNKNOWN INDICATION
     Route: 065
     Dates: start: 20140106, end: 20140115

REACTIONS (3)
  - Urticaria [Recovered/Resolved]
  - Pruritus [Recovered/Resolved]
  - Eyelid oedema [Recovered/Resolved]
